FAERS Safety Report 9026234 (Version 2)
Quarter: 2013Q2

REPORT INFORMATION
  Report Type: Spontaneous
  Country: JP (occurrence: None)
  Receive Date: 20130104
  Receipt Date: 20130402
  Transmission Date: 20140414
  Serious: Yes (Death)
  Sender: FDA-Public Use
  Company Number: 201301000008

PATIENT
  Age: 1 Day
  Sex: Male
  Weight: .9 kg

DRUGS (3)
  1. NITRIC OXIDE [Suspect]
     Indication: PERSISTENT FOETAL CIRCULATION
     Dosage: CONTINUOUS
     Route: 055
     Dates: start: 20120402, end: 20120402
  2. NITRIC OXIDE [Suspect]
     Indication: NEONATAL RESPIRATORY FAILURE
     Dosage: CONTINUOUS
     Route: 055
     Dates: start: 20120402, end: 20120402
  3. NITRIC OXIDE (NITRIC OXIDE) INHALATION GAS, 800PPM [Concomitant]

REACTIONS (4)
  - Methaemoglobinaemia [None]
  - Sepsis [None]
  - Hypoxia [None]
  - Blood lactate dehydrogenase increased [None]
